FAERS Safety Report 9757151 (Version 2)
Quarter: 2013Q4

REPORT INFORMATION
  Report Type: Spontaneous
  Country: US (occurrence: US)
  Receive Date: 20131213
  Receipt Date: 20131224
  Transmission Date: 20140711
  Serious: No
  Sender: FDA-Public Use
  Company Number: US-GILEAD-2013-0089562

PATIENT
  Age: 55 Year
  Sex: Male
  Weight: 82.54 kg

DRUGS (1)
  1. VIREAD [Suspect]
     Indication: HIV INFECTION
     Dosage: 300 MG, UNK
     Route: 048
     Dates: start: 20120206, end: 20131106

REACTIONS (3)
  - Urticaria [Unknown]
  - Lip swelling [Unknown]
  - Rash [Recovered/Resolved]
